FAERS Safety Report 7498921-9 (Version None)
Quarter: 2011Q2

REPORT INFORMATION
  Report Type: 
  Country: None (occurrence: None)
  Receive Date: 20110516
  Receipt Date: 20110503
  Transmission Date: 20111010
  Serious: Yes (Hospitalization)
  Sender: FDA-Public Use
  Company Number: 2011MA004886

PATIENT
  Age: 14 Year
  Sex: Female

DRUGS (4)
  1. CARBAMAZEPINE [Suspect]
     Indication: EPILEPSY
  2. PHENOBARBITAL VALPROATE [Concomitant]
  3. ZONISAMIDE [Concomitant]
  4. SEMISODIUM [Concomitant]

REACTIONS (6)
  - PANCREATITIS [None]
  - ALOPECIA [None]
  - RESPIRATORY DISTRESS [None]
  - PERITONITIS SCLEROSING [None]
  - INTESTINAL OBSTRUCTION [None]
  - OVARIAN GRANULOSA-THECA CELL TUMOUR [None]
